FAERS Safety Report 20442625 (Version 1)
Quarter: 2022Q1

REPORT INFORMATION
  Report Type: Spontaneous
  Country: US (occurrence: US)
  Receive Date: 20220208
  Receipt Date: 20220208
  Transmission Date: 20220423
  Serious: No
  Sender: FDA-Public Use
  Company Number: US-TAKEDA-2022TUS007961

PATIENT

DRUGS (1)
  1. VYVANSE [Suspect]
     Active Substance: LISDEXAMFETAMINE DIMESYLATE
     Indication: Attention deficit hyperactivity disorder
     Dosage: 70 MILLIGRAM, DAILY
     Route: 065

REACTIONS (4)
  - Therapeutic product effect decreased [Unknown]
  - Manufacturing materials issue [Unknown]
  - Off label use [Unknown]
  - Inability to afford medication [Unknown]
